FAERS Safety Report 10230870 (Version 1)
Quarter: 2014Q2

REPORT INFORMATION
  Report Type: Spontaneous
  Country: US (occurrence: US)
  Receive Date: 20140611
  Receipt Date: 20140611
  Transmission Date: 20141212
  Serious: Yes (Other)
  Sender: FDA-Public Use
  Company Number: US-BAYER-2014-082432

PATIENT
  Age: 86 Year
  Sex: Female
  Weight: 72.56 kg

DRUGS (8)
  1. BAYER ASPIRIN REGIMEN ADULT LOW STRENGTH [Suspect]
     Indication: ISCHAEMIC HEART DISEASE PROPHYLAXIS
     Dosage: 1 DF, QD
     Route: 048
  2. ALEVE CAPLET [Suspect]
     Indication: ANALGESIC THERAPY
     Dosage: DAILY DOSE 2 DF
     Route: 048
     Dates: start: 2014
  3. ALEVE CAPLET [Suspect]
     Indication: ANALGESIC THERAPY
     Dosage: DAILY DOSE 3 DF
     Route: 048
     Dates: start: 2014
  4. HYDROCHLOROTHIAZIDE [Concomitant]
  5. AMLODIPINE [Concomitant]
  6. ALLOPURINOL [Concomitant]
  7. DIOVAN [Concomitant]
  8. METOPROLOL [Concomitant]

REACTIONS (6)
  - Age-related macular degeneration [Recovered/Resolved]
  - Blindness [Not Recovered/Not Resolved]
  - Age-related macular degeneration [Not Recovered/Not Resolved]
  - Extra dose administered [Recovered/Resolved]
  - Drug ineffective [None]
  - Incorrect drug administration duration [Not Recovered/Not Resolved]
